FAERS Safety Report 13817677 (Version 1)
Quarter: 2017Q3

REPORT INFORMATION
  Report Type: Spontaneous
  Country: IN (occurrence: IN)
  Receive Date: 20170731
  Receipt Date: 20170731
  Transmission Date: 20171127
  Serious: Yes (Hospitalization)
  Sender: FDA-Public Use
  Company Number: IN-UNICHEM LABORATORIES LIMITED-UCM201707-000196

PATIENT
  Age: 41 Year
  Sex: Male

DRUGS (1)
  1. METRONIDAZOLE. [Suspect]
     Active Substance: METRONIDAZOLE
     Indication: HEPATIC AMOEBIASIS
     Route: 048

REACTIONS (9)
  - Ataxia [Recovering/Resolving]
  - Toxic encephalopathy [Recovering/Resolving]
  - Abnormal behaviour [Recovering/Resolving]
  - Dysarthria [Recovering/Resolving]
  - Altered state of consciousness [Recovering/Resolving]
  - Cognitive disorder [Recovering/Resolving]
  - Toxicity to various agents [Recovering/Resolving]
  - Disorientation [Recovering/Resolving]
  - Pyrexia [Recovering/Resolving]
